FAERS Safety Report 7361762-7 (Version None)
Quarter: 2011Q1

REPORT INFORMATION
  Report Type: 
  Country: None (occurrence: None)
  Receive Date: 20110318
  Receipt Date: 20110310
  Transmission Date: 20110831
  Serious: Yes (Other)
  Sender: FDA-Public Use
  Company Number: ES-MERCK-1103USA01830

PATIENT
  Age: 65 Year
  Sex: Female

DRUGS (1)
  1. PRINIVIL [Suspect]
     Route: 048

REACTIONS (6)
  - ERYTHEMA [None]
  - ANGIOEDEMA [None]
  - DYSPNOEA [None]
  - DYSPHONIA [None]
  - DYSPHAGIA [None]
  - OROPHARYNGEAL PAIN [None]
